FAERS Safety Report 4405214-2 (Version None)
Quarter: 2004Q3

REPORT INFORMATION
  Report Type: 
  Country: None (occurrence: None)
  Receive Date: 20040722
  Receipt Date: 20040722
  Transmission Date: 20050211
  Serious: Yes (Hospitalization)
  Sender: FDA-Public Use
  Company Number: None

PATIENT
  Age: 75 Year
  Sex: Male
  Weight: 71.4 kg

DRUGS (22)
  1. ZOSYN [Suspect]
  2. HYDROXYZINE [Concomitant]
  3. FLUOCINONIDE [Concomitant]
  4. NYSTAT [Concomitant]
  5. FLUTICASONE PROPIONATE [Concomitant]
  6. ENALAPRIL MALEATE [Concomitant]
  7. CLONAZEPAM [Concomitant]
  8. BACLOFEN [Concomitant]
  9. NITROGLYCERIN [Concomitant]
  10. ZZLANSOPRAZOLE [Concomitant]
  11. DONEPEZIL HCL [Concomitant]
  12. POTASSIUM CHLORIDE [Concomitant]
  13. ASPIRIN [Concomitant]
  14. METFORMIN HCL [Concomitant]
  15. ENOXAPARIN [Concomitant]
  16. ATENOLOL [Concomitant]
  17. NITROGLYCERIN [Concomitant]
  18. POTASSIUM CHLORIDE [Concomitant]
  19. HUMULIN R [Concomitant]
  20. IPATROPIUM BROMIDE [Concomitant]
  21. ALBUTEROL [Concomitant]
  22. VANCOMYCIN [Concomitant]

REACTIONS (1)
  - RASH [None]
